FAERS Safety Report 8607137 (Version 4)
Quarter: 2014Q1

REPORT INFORMATION
  Report Type: Spontaneous
  Country: US (occurrence: US)
  Receive Date: 20120611
  Receipt Date: 20140131
  Transmission Date: 20141002
  Serious: Yes (Hospitalization, Other)
  Sender: FDA-Public Use
  Company Number: US-ASTRAZENECA-2012SE36292

PATIENT
  Age: 58 Year
  Sex: Female
  Weight: 79.4 kg

DRUGS (22)
  1. NEXIUM [Suspect]
     Indication: GASTROOESOPHAGEAL REFLUX DISEASE
     Dosage: ONE TIMES A DAY
     Route: 048
     Dates: start: 1998
  2. NEXIUM [Suspect]
     Indication: GASTROOESOPHAGEAL REFLUX DISEASE
     Route: 048
     Dates: start: 20080829
  3. NEXIUM [Suspect]
     Indication: GASTROOESOPHAGEAL REFLUX DISEASE
     Route: 048
     Dates: start: 20120105
  4. PRILOSEC [Suspect]
     Route: 048
     Dates: start: 20110820
  5. PANTOPRAZOLE [Concomitant]
     Dates: start: 20111109
  6. PANTOPRAZOLE [Concomitant]
     Dates: start: 20121026
  7. SERTRALINE [Concomitant]
     Dates: start: 20111109
  8. ETODOLAC [Concomitant]
     Dates: start: 20111109
  9. ZOLPIDEM [Concomitant]
     Dates: start: 20111109
  10. NITROSTAT [Concomitant]
     Dates: start: 20111109
  11. HYDROC/APAP [Concomitant]
     Dosage: 7.5
     Dates: start: 20111111
  12. CHLORZOXAZONE [Concomitant]
     Dosage: 500M
     Dates: start: 20111229
  13. METOPROLOL SUCC ER/ TOPROL XL [Concomitant]
     Indication: BLOOD PRESSURE ABNORMAL
     Dates: start: 20120105
  14. METOPROLOL SUCC ER/ TOPROL XL [Concomitant]
     Indication: BLOOD PRESSURE ABNORMAL
  15. TOPIRAMATE [Concomitant]
     Dates: start: 20120302
  16. RANEXA [Concomitant]
     Indication: BLOOD PRESSURE
     Dosage: ONE A DAY
  17. NEURONTIN [Concomitant]
     Indication: NERVE INJURY
     Dosage: THREE A DAY
  18. AMBIEN [Concomitant]
     Indication: SLEEP DISORDER
     Dosage: ONE A DAY
  19. DURAGESIC [Concomitant]
     Indication: PAIN
     Dosage: ONE EVERY THREE DAY
  20. PREMARIN [Concomitant]
     Dates: start: 20080529
  21. CELEBREX [Concomitant]
  22. TOPAMAX [Concomitant]

REACTIONS (11)
  - Haemorrhage [Unknown]
  - Ulcer haemorrhage [Unknown]
  - Osteoporosis [Unknown]
  - Foot fracture [Unknown]
  - Chest pain [Unknown]
  - Aortic disorder [Unknown]
  - Cataract [Unknown]
  - Chronic obstructive pulmonary disease [Unknown]
  - Abdominal pain upper [Unknown]
  - Diarrhoea [Unknown]
  - Depression [Unknown]
